FAERS Safety Report 18116852 (Version 4)
Quarter: 2021Q2

REPORT INFORMATION
  Report Type: Spontaneous
  Country: CA (occurrence: CA)
  Receive Date: 20200805
  Receipt Date: 20210602
  Transmission Date: 20210717
  Serious: Yes (Other)
  Sender: FDA-Public Use
  Company Number: CA-ANIPHARMA-2020-CA-001477

PATIENT
  Age: 68 Year
  Sex: Female

DRUGS (16)
  1. NITROGLYCERIN. [Suspect]
     Active Substance: NITROGLYCERIN
     Dosage: 0.4 MILLIGRAM 1EVERY 1 HOURS
     Route: 065
  2. DOXORUBICIN [Suspect]
     Active Substance: DOXORUBICIN
     Route: 065
  3. CISPLATIN. [Concomitant]
     Active Substance: CISPLATIN
     Route: 065
  4. BISOPROLOL [Suspect]
     Active Substance: BISOPROLOL
     Dosage: 10 MG DAILY / 5 MG DAILY
     Route: 065
  5. NITRO?DUR [Suspect]
     Active Substance: NITROGLYCERIN
     Dosage: 0.4 MG QH
     Route: 065
  6. RITUXIMAB. [Concomitant]
     Active Substance: RITUXIMAB
     Route: 065
  7. SPIRONOLACTONE. [Suspect]
     Active Substance: SPIRONOLACTONE
     Dosage: 25 MG DAILY
     Route: 065
  8. PERINDOPRIL [Suspect]
     Active Substance: PERINDOPRIL
     Dosage: 4 MG DAILY
     Route: 065
  9. CYTARABINE. [Concomitant]
     Active Substance: CYTARABINE
     Route: 065
  10. CANDESARTAN CILEXETIL. [Suspect]
     Active Substance: CANDESARTAN CILEXETIL
     Indication: CARDIAC FAILURE CHRONIC
     Dosage: 16 MG DAILY
     Route: 048
  11. PREDNISONE. [Concomitant]
     Active Substance: PREDNISONE
     Route: 065
  12. VINCRISTINE [Concomitant]
     Active Substance: VINCRISTINE
     Route: 065
  13. FUROSEMIDE. [Suspect]
     Active Substance: FUROSEMIDE
     Dosage: 40 MG DAILY
     Route: 065
  14. CYCLOPHOSPHAMIDE. [Concomitant]
     Active Substance: CYCLOPHOSPHAMIDE
     Route: 065
  15. DEXAMETHASONE. [Concomitant]
     Active Substance: DEXAMETHASONE
     Route: 065
  16. MELPHALAN. [Concomitant]
     Active Substance: MELPHALAN
     Route: 065

REACTIONS (5)
  - Cardiac failure [Unknown]
  - Drug ineffective [Recovered/Resolved]
  - Cardiomyopathy [Unknown]
  - Cough [Recovered/Resolved]
  - Dyspnoea [Recovered/Resolved]
